FAERS Safety Report 21701230 (Version 1)
Quarter: 2022Q4

REPORT INFORMATION
  Report Type: Spontaneous
  Country: US (occurrence: None)
  Receive Date: 20221208
  Receipt Date: 20221208
  Transmission Date: 20230113
  Serious: No
  Sender: FDA-Public Use
  Company Number: None

PATIENT
  Age: 53 Year
  Sex: Female
  Weight: 81.9 kg

DRUGS (1)
  1. BUPROPION [Suspect]
     Active Substance: BUPROPION
     Indication: Post-traumatic stress disorder
     Dosage: FREQUENCY : DAILY;?
     Route: 048

REACTIONS (8)
  - Head discomfort [None]
  - Headache [None]
  - Vision blurred [None]
  - Mood swings [None]
  - Night sweats [None]
  - Anxiety [None]
  - Heart rate increased [None]
  - Product substitution issue [None]

NARRATIVE: CASE EVENT DATE: 20221116
